FAERS Safety Report 13679618 (Version 1)
Quarter: 2017Q2

REPORT INFORMATION
  Report Type: Report from Study
  Country: DE (occurrence: DE)
  Receive Date: 20170622
  Receipt Date: 20170622
  Transmission Date: 20170830
  Serious: Yes (Hospitalization)
  Sender: FDA-Public Use
  Company Number: DE-BAYER-2017-109264

PATIENT
  Age: 56 Year
  Sex: Male

DRUGS (1)
  1. BETAFERON [Suspect]
     Active Substance: INTERFERON BETA-1B
     Indication: MULTIPLE SCLEROSIS
     Dosage: 250 ?G, QOD
     Route: 058
     Dates: start: 20030601, end: 20170215

REACTIONS (5)
  - Injection site reaction [Unknown]
  - Injection site inflammation [Recovered/Resolved]
  - Injection site induration [Recovered/Resolved]
  - Injection site induration [Unknown]
  - Sepsis [Recovered/Resolved]
